FAERS Safety Report 4933418-9 (Version None)
Quarter: 2006Q1

REPORT INFORMATION
  Report Type: 
  Country: None (occurrence: None)
  Receive Date: 20060106
  Receipt Date: 20050804
  Transmission Date: 20060701
  Serious: No
  Sender: FDA-Public Use
  Company Number: 200511577BWH

PATIENT
  Age: 68 Year
  Sex: Male

DRUGS (8)
  1. LEVITRA [Suspect]
     Indication: ERECTILE DYSFUNCTION
     Dosage: 5 MG, OW, ORAL
     Route: 048
     Dates: start: 20050701
  2. LEVITRA [Suspect]
     Dosage: 5 MG, OW, ORAL
     Route: 048
     Dates: start: 20050701
  3. LEVITRA [Suspect]
     Dosage: 10 MG, OW,ORAL
     Route: 048
     Dates: start: 20050701
  4. LEVITRA [Suspect]
     Dosage: 10 MG, OW, ORAL
     Route: 048
     Dates: start: 20050701
  5. LEVITRA [Suspect]
     Dosage: 15 MG, OW, ORAL
     Route: 048
     Dates: start: 20050101
  6. NIFEDIPINE [Concomitant]
  7. HYTRIN [Concomitant]
  8. FLURAZEPAM [Concomitant]

REACTIONS (2)
  - ERECTILE DYSFUNCTION [None]
  - HEADACHE [None]
